FAERS Safety Report 9320503 (Version 1)
Quarter: 2013Q2

REPORT INFORMATION
  Report Type: Spontaneous
  Country: NL (occurrence: NL)
  Receive Date: 20130530
  Receipt Date: 20130530
  Transmission Date: 20140414
  Serious: Yes (Other)
  Sender: FDA-Public Use
  Company Number: PHHY2013NL053812

PATIENT
  Sex: Male

DRUGS (2)
  1. CO-TRIMOXAZOLE [Suspect]
     Indication: EAR INFECTION
     Dosage: 960 MG
  2. CO-TRIMOXAZOLE [Suspect]
     Dosage: 480 MG

REACTIONS (5)
  - Respiratory depression [Recovering/Resolving]
  - Increased upper airway secretion [Recovering/Resolving]
  - Condition aggravated [Recovering/Resolving]
  - Cough [Recovering/Resolving]
  - Rash erythematous [Recovering/Resolving]
